FAERS Safety Report 6576318-3 (Version None)
Quarter: 2010Q1

REPORT INFORMATION
  Report Type: 
  Country: None (occurrence: None)
  Receive Date: 20100210
  Receipt Date: 20100106
  Transmission Date: 20100710
  Serious: Yes (Hospitalization)
  Sender: FDA-Public Use
  Company Number: BR-RANBAXY-2010R5-30869

PATIENT

DRUGS (1)
  1. AMOXACILINA SODICA [Suspect]
     Indication: DRUG USE FOR UNKNOWN INDICATION
     Dosage: 14 TABLETS OF 500 MG, UNK
     Route: 048
     Dates: start: 20100106, end: 20100106

REACTIONS (1)
  - INTENTIONAL OVERDOSE [None]
